FAERS Safety Report 6540029-0 (Version None)
Quarter: 2010Q1

REPORT INFORMATION
  Report Type: 
  Country: None (occurrence: None)
  Receive Date: 20100111
  Receipt Date: 20091229
  Transmission Date: 20100710
  Serious: Yes (Hospitalization, Other)
  Sender: FDA-Public Use
  Company Number: THYM-1001179

PATIENT
  Age: 41 Year
  Sex: Male
  Weight: 71.7 kg

DRUGS (46)
  1. THYMOGLOBULIN [Suspect]
     Indication: STEM CELL TRANSPLANT
     Dosage: 41 MG, INTRAVENOUS, 124 MG, INTRAVENOUS, 166 MG, INTRVENOUS
     Route: 042
     Dates: start: 20090608, end: 20090608
  2. THYMOGLOBULIN [Suspect]
     Indication: STEM CELL TRANSPLANT
     Dosage: 41 MG, INTRAVENOUS, 124 MG, INTRAVENOUS, 166 MG, INTRVENOUS
     Route: 042
     Dates: start: 20090609, end: 20090609
  3. THYMOGLOBULIN [Suspect]
     Indication: STEM CELL TRANSPLANT
     Dosage: 41 MG, INTRAVENOUS, 124 MG, INTRAVENOUS, 166 MG, INTRVENOUS
     Route: 042
     Dates: start: 20090610, end: 20090610
  4. MOZOBIL [Concomitant]
  5. ALUMINUM AND MAGNESIUM HYDROXIDE-SIMETHICONE [Concomitant]
  6. CARVEDILOL [Concomitant]
  7. CHOLECALCIFEROL [Concomitant]
  8. DEXTROSE [Concomitant]
  9. DULOXETINE HYDROCHLORIDE [Concomitant]
  10. FOLIC ACID [Concomitant]
  11. FOSCARNET [Concomitant]
  12. GABAPENTIN [Concomitant]
  13. GLIPIZIDE [Concomitant]
  14. HYDROCORTISONE SODIUM SUCCINATE [Concomitant]
  15. HYDROMORPHONE HCL [Concomitant]
  16. INSULIN (INSULIN HUMAN) [Concomitant]
  17. LISINOPRIL [Concomitant]
  18. LORAZEPAM [Concomitant]
  19. MAGNESIUM OXIDE (MAGNESIUM OXIDE) [Concomitant]
  20. MAGNESIUM SULFATE [Concomitant]
  21. METHYLPREDNISOLONE [Concomitant]
  22. MOXIFLOXACIN HCL [Concomitant]
  23. MULTIVITAMIN [Concomitant]
  24. OMEPRAZOLE [Concomitant]
  25. ONDANSETRON HCL (ONDANSETRON HCL) [Concomitant]
  26. OXYBUTYNIN CHLORIDE (OXYBUTYNIN HYDROCHLORIDE) [Concomitant]
  27. OXYMORPHONE HYDROCHLORIDE (OXYMORPHONE HYDROCHLORIDE) [Concomitant]
  28. OYSTER SHELL CALCIUM (CALCIUM CARBONATE) [Concomitant]
  29. POSACONAZOLE [Concomitant]
  30. POTASSIUM CHLORIDE [Concomitant]
  31. POTASSIUM PHOSPHATES [Concomitant]
  32. SENNOSIDES DOCUSATE SODIUM (SENNOSIDES DOCUSATE SODIUM) [Concomitant]
  33. SODIUM CHLORIDE 0.9% [Concomitant]
  34. SODIUM PHOSPHATE (SODIUM PHOSPHATE) [Concomitant]
  35. TACROLIMUS [Concomitant]
  36. VALACICLOVIR HYDROCHLORIDE (VALACICLOVIR HYDROCHLORIDE) [Concomitant]
  37. ATOVAQUONE [Concomitant]
  38. AMBIEN [Concomitant]
  39. ALLEGRA [Concomitant]
  40. IMODIUM [Concomitant]
  41. OPANA [Concomitant]
  42. SENOKOT (SENNA ALEXANDRINA) [Concomitant]
  43. NORVASC [Concomitant]
  44. PENTAMIDINE (PENTAMIDINE) [Concomitant]
  45. URSODIOL [Concomitant]
  46. BUDESONIDE [Concomitant]

REACTIONS (11)
  - ACUTE GRAFT VERSUS HOST DISEASE IN SKIN [None]
  - ADRENAL INSUFFICIENCY [None]
  - BK VIRUS INFECTION [None]
  - CONSTIPATION [None]
  - FLANK PAIN [None]
  - HYDRONEPHROSIS [None]
  - HYPOMAGNESAEMIA [None]
  - RENAL FAILURE ACUTE [None]
  - TREMOR [None]
  - URETERIC OBSTRUCTION [None]
  - VIRAL HAEMORRHAGIC CYSTITIS [None]
